FAERS Safety Report 10146953 (Version 1)
Quarter: 2014Q2

REPORT INFORMATION
  Report Type: Spontaneous
  Country: US (occurrence: US)
  Receive Date: 20140501
  Receipt Date: 20140501
  Transmission Date: 20141212
  Serious: Yes (Other)
  Sender: FDA-Public Use
  Company Number: US-GLAXOSMITHKLINE-A1070807A

PATIENT
  Age: 23 Year
  Sex: Female

DRUGS (5)
  1. TREXIMET [Suspect]
     Indication: MIGRAINE
     Route: 048
     Dates: start: 2009
  2. LAMICTAL [Suspect]
     Indication: EPILEPSY
     Route: 048
  3. VIMPAT [Concomitant]
  4. PRISTIQ [Concomitant]
  5. IBS MEDICATION [Concomitant]

REACTIONS (3)
  - Suicidal ideation [Recovered/Resolved]
  - Somnolence [Not Recovered/Not Resolved]
  - Headache [Recovered/Resolved]
